FAERS Safety Report 9890828 (Version 1)
Quarter: 2014Q1

REPORT INFORMATION
  Report Type: Not Available
  Country: GB (occurrence: GB)
  Receive Date: 20140212
  Receipt Date: 20140212
  Transmission Date: 20141002
  Serious: Yes (Other)
  Sender: FDA-Public Use
  Company Number: GB-ASTELLAS-2014EU000940

PATIENT
  Age: 84 Year
  Sex: Male
  Weight: 88 kg

DRUGS (4)
  1. YM178 [Suspect]
     Dosage: UNK
     Route: 065
  2. BENDROFLUMETHIAZIDE [Concomitant]
     Dosage: UNK
     Route: 065
     Dates: start: 20130920, end: 20131115
  3. LOSARTAN [Concomitant]
     Dosage: UNK
     Route: 065
     Dates: start: 20130920, end: 20131115
  4. TAMSULOSIN HYDROCHLORIDE [Concomitant]
     Dosage: UNK
     Route: 065
     Dates: start: 20130920, end: 20131115

REACTIONS (2)
  - Loss of consciousness [Recovered/Resolved]
  - Syncope [Recovered/Resolved]
